FAERS Safety Report 12321511 (Version 1)
Quarter: 2016Q2

REPORT INFORMATION
  Report Type: Spontaneous
  Country: US (occurrence: US)
  Receive Date: 20160502
  Receipt Date: 20160502
  Transmission Date: 20160815
  Serious: No
  Sender: FDA-Public Use
  Company Number: US-BAYER-2016-078136

PATIENT
  Sex: Male

DRUGS (2)
  1. SINGULAIR [Concomitant]
     Active Substance: MONTELUKAST SODIUM
  2. MIRALAX [Suspect]
     Active Substance: POLYETHYLENE GLYCOL 3350
     Dosage: QD, DAILY

REACTIONS (3)
  - Off label use [None]
  - Inappropriate schedule of drug administration [None]
  - Prostatic specific antigen increased [None]

NARRATIVE: CASE EVENT DATE: 2016
